FAERS Safety Report 5870859-X (Version None)
Quarter: 2008Q3

REPORT INFORMATION
  Report Type: 
  Country: None (occurrence: None)
  Receive Date: 20080829
  Receipt Date: 20080819
  Transmission Date: 20090109
  Serious: Yes (Life-Threatening, Hospitalization)
  Sender: FDA-Public Use
  Company Number: 237814J08USA

PATIENT
  Age: 52 Year
  Sex: Male
  Weight: 81.6475 kg

DRUGS (2)
  1. REBIF [Suspect]
     Indication: MULTIPLE SCLEROSIS
     Dosage: 44 MCG, 3 IN 1 WEEKS, SUBCUTANEOUS
     Route: 058
     Dates: start: 20070813, end: 20080806
  2. AMANTADINE HCL [Concomitant]

REACTIONS (9)
  - BLOOD PRESSURE DECREASED [None]
  - CHOLELITHIASIS [None]
  - INFECTION [None]
  - MUSCULOSKELETAL CHEST PAIN [None]
  - OXYGEN SATURATION DECREASED [None]
  - PANCREATITIS [None]
  - PULMONARY OEDEMA [None]
  - PYREXIA [None]
  - URINE OUTPUT DECREASED [None]
